FAERS Safety Report 7959318-8 (Version None)
Quarter: 2011Q4

REPORT INFORMATION
  Report Type: 
  Country: None (occurrence: None)
  Receive Date: 20111206
  Receipt Date: 20111201
  Transmission Date: 20120403
  Serious: Yes (Death, Other)
  Sender: FDA-Public Use
  Company Number: FR-PFIZER INC-2011163295

PATIENT
  Age: 52 Year
  Sex: Female
  Weight: 50 kg

DRUGS (2)
  1. CELEBREX [Concomitant]
     Dosage: UNK
     Route: 048
     Dates: start: 20050101
  2. SULFASALAZINE [Suspect]
     Indication: RHEUMATOID ARTHRITIS
     Dosage: 2 DF, 2X/DAY
     Route: 048
     Dates: start: 20050101

REACTIONS (3)
  - MALIGNANT PERITONEAL NEOPLASM [None]
  - PANCREATITIS ACUTE [None]
  - PANCREATIC CARCINOMA [None]
